FAERS Safety Report 5935065-9 (Version None)
Quarter: 2008Q4

REPORT INFORMATION
  Report Type: 
  Country: None (occurrence: None)
  Receive Date: 20081030
  Receipt Date: 20080929
  Transmission Date: 20090506
  Serious: No
  Sender: FDA-Public Use
  Company Number: US-BAYER-200713527BWH

PATIENT
  Sex: Male

DRUGS (5)
  1. NEXAVAR [Suspect]
     Indication: DRUG USE FOR UNKNOWN INDICATION
     Route: 048
  2. NEXAVAR [Suspect]
     Dosage: TOTAL DAILY DOSE: 800 MG  UNIT DOSE: 200 MG
     Route: 048
     Dates: start: 20070601
  3. NEXAVAR [Suspect]
     Dosage: TOTAL DAILY DOSE: 400 MG  UNIT DOSE: 200 MG
     Route: 048
  4. ASPIRIN [Concomitant]
     Indication: RASH
     Dosage: UNIT DOSE: 325 MG
     Route: 048
  5. IMODIUM [Concomitant]
     Indication: DIARRHOEA

REACTIONS (3)
  - DIARRHOEA [None]
  - LIVER DISORDER [None]
  - RASH PRURITIC [None]
